FAERS Safety Report 23708075 (Version 1)
Quarter: 2024Q2

REPORT INFORMATION
  Report Type: Spontaneous
  Country: CN (occurrence: None)
  Receive Date: 20240404
  Receipt Date: 20240404
  Transmission Date: 20240715
  Serious: Yes (Hospitalization, Other)
  Sender: FDA-Public Use
  Company Number: 2024A073912

PATIENT
  Age: 74 Year
  Sex: Male

DRUGS (3)
  1. DURVALUMAB [Suspect]
     Active Substance: DURVALUMAB
     Indication: Small cell lung cancer limited stage
     Route: 042
  2. DURVALUMAB [Suspect]
     Active Substance: DURVALUMAB
     Indication: Small cell lung cancer limited stage
     Dosage: TEN CYCLES OF MAINTENANCE THERAPY WITH DURVALUMAB FROM JULY 2021 TO APRIL 2022
     Route: 042
     Dates: start: 202107, end: 202204
  3. CISPLATIN\ETOPOSIDE [Concomitant]
     Active Substance: CISPLATIN\ETOPOSIDE
     Indication: Small cell lung cancer limited stage
     Dosage: CISPLATIN (130 MG/M2) PLUS ETOPOSIDE (100 MG/DAY)

REACTIONS (1)
  - Systemic scleroderma [Recovering/Resolving]
